FAERS Safety Report 12942607 (Version 1)
Quarter: 2016Q4

REPORT INFORMATION
  Report Type: Spontaneous
  Country: US (occurrence: US)
  Receive Date: 20161115
  Receipt Date: 20161115
  Transmission Date: 20170207
  Serious: Yes (Other)
  Sender: FDA-Public Use
  Company Number: US-BAYER-2016-211451

PATIENT
  Age: 33 Year
  Sex: Male

DRUGS (1)
  1. KOVALTRY [Suspect]
     Active Substance: ANTIHEMOPHILIC FACTOR, HUMAN RECOMBINANT
     Indication: FACTOR VIII DEFICIENCY
     Dosage: UNK

REACTIONS (7)
  - Contusion [None]
  - Renal haemorrhage [None]
  - Sleep disorder [None]
  - Feeling hot [None]
  - Haemorrhage [Recovered/Resolved]
  - Initial insomnia [None]
  - Haemorrhage [None]

NARRATIVE: CASE EVENT DATE: 201607
